FAERS Safety Report 7519626-1 (Version None)
Quarter: 2011Q2

REPORT INFORMATION
  Report Type: 
  Country: None (occurrence: None)
  Receive Date: 20110602
  Receipt Date: 20110524
  Transmission Date: 20111010
  Serious: Yes (Hospitalization)
  Sender: FDA-Public Use
  Company Number: A0929000A

PATIENT
  Sex: Female
  Weight: 44.5 kg

DRUGS (4)
  1. ATROVENT [Suspect]
     Route: 065
  2. SPIRIVA [Suspect]
     Route: 065
  3. VENTOLIN [Suspect]
     Route: 065
  4. ADVAIR DISKUS 100/50 [Suspect]
     Indication: ASTHMA
     Dosage: 1PUFF TWICE PER DAY
     Route: 055
     Dates: start: 20080101

REACTIONS (5)
  - CHRONIC OBSTRUCTIVE PULMONARY DISEASE [None]
  - OROPHARYNGEAL PAIN [None]
  - DYSPHONIA [None]
  - BRONCHITIS [None]
  - DRY THROAT [None]
